FAERS Safety Report 25502893 (Version 1)
Quarter: 2025Q3

REPORT INFORMATION
  Report Type: Spontaneous
  Country: US (occurrence: US)
  Receive Date: 20250702
  Receipt Date: 20250702
  Transmission Date: 20251021
  Serious: No
  Sender: GERON CORP
  Company Number: US-GERON CORPORATION-US-GER-25-000100

PATIENT
  Age: 79 Year
  Sex: Male

DRUGS (2)
  1. RYTELO [Suspect]
     Active Substance: IMETELSTAT SODIUM
     Indication: Product used for unknown indication
     Route: 065
     Dates: start: 20250218, end: 20250218
  2. RYTELO [Suspect]
     Active Substance: IMETELSTAT SODIUM
     Route: 065
     Dates: start: 20250318, end: 20250318

REACTIONS (3)
  - Back pain [Recovered/Resolved]
  - Infusion related reaction [Recovered/Resolved]
  - Infusion related reaction [Unknown]

NARRATIVE: CASE EVENT DATE: 20250218
